FAERS Safety Report 9361313 (Version 1)
Quarter: 2013Q2

REPORT INFORMATION
  Report Type: Report from Study
  Country: CA (occurrence: CA)
  Receive Date: 20130621
  Receipt Date: 20130621
  Transmission Date: 20140414
  Serious: Yes (Other)
  Sender: FDA-Public Use
  Company Number: CA-JNJFOC-20130612753

PATIENT
  Sex: Female
  Weight: 65.77 kg

DRUGS (12)
  1. REMICADE [Suspect]
     Indication: CROHN^S DISEASE
     Route: 042
     Dates: start: 200408
  2. IMURAN [Concomitant]
     Route: 048
  3. IMOVANE [Concomitant]
     Route: 048
  4. VITAMIN C [Concomitant]
     Route: 065
  5. VITAMIN D [Concomitant]
     Route: 065
  6. MULTIPLE VITAMIN [Concomitant]
     Route: 065
  7. IRON [Concomitant]
     Route: 065
  8. OMEGA 3 [Concomitant]
     Route: 065
  9. Q10 [Concomitant]
     Route: 065
  10. PREDNISONE [Concomitant]
     Route: 065
  11. CALCIUM [Concomitant]
     Route: 065
  12. ZINC [Concomitant]
     Route: 065

REACTIONS (1)
  - Cholelithiasis [Recovered/Resolved]
